FAERS Safety Report 10503560 (Version 1)
Quarter: 2014Q4

REPORT INFORMATION
  Report Type: Spontaneous
  Country: US (occurrence: None)
  Receive Date: 20141007
  Receipt Date: 20141007
  Transmission Date: 20150528
  Serious: Yes (Hospitalization)
  Sender: FDA-Public Use
  Company Number: None

PATIENT
  Age: 60 Year
  Sex: Female
  Weight: 67.13 kg

DRUGS (9)
  1. FLONASE [Concomitant]
     Active Substance: FLUTICASONE PROPIONATE
  2. LINZESS [Suspect]
     Active Substance: LINACLOTIDE
     Indication: IRRITABLE BOWEL SYNDROME
     Dosage: 145 MCG/CAPSULE, 1 CAPSULE, 1 X DAILY, BY MOUTH
     Route: 048
     Dates: start: 20140613, end: 20140625
  3. PRILOSEC [Concomitant]
     Active Substance: OMEPRAZOLE MAGNESIUM
  4. CLARITIN-D 12 HOUR [Concomitant]
     Active Substance: LORATADINE\PSEUDOEPHEDRINE SULFATE
  5. C-PAP MACHINE [Concomitant]
     Active Substance: DEVICE
  6. AMBIEN [Concomitant]
     Active Substance: ZOLPIDEM TARTRATE
  7. ZANAFLEX [Concomitant]
     Active Substance: TIZANIDINE HYDROCHLORIDE
  8. SINGALAIR [Concomitant]
  9. RELAFEN [Concomitant]
     Active Substance: NABUMETONE

REACTIONS (6)
  - Colitis ischaemic [None]
  - Nausea [None]
  - Diverticulitis [None]
  - Abdominal pain lower [None]
  - Abdominal pain [None]
  - Rectal haemorrhage [None]

NARRATIVE: CASE EVENT DATE: 20140625
